FAERS Safety Report 8898463 (Version 3)
Quarter: 2012Q4

REPORT INFORMATION
  Report Type: 
  Country: US (occurrence: US)
  Receive Date: 20121109
  Receipt Date: 20121205
  Transmission Date: 20130627
  Serious: No
  Sender: FDA-Public Use
  Company Number: US-009507513-1211USA003379

PATIENT
  Age: 55 None
  Sex: Female

DRUGS (3)
  1. PEGINTRON [Suspect]
     Indication: HEPATITIS C
     Dosage: 150 Microgram, qw
     Dates: start: 20121104, end: 201211
  2. PEGINTRON [Suspect]
     Dosage: 120 Microgram, qw
     Dates: start: 201211
  3. RIBAVIRIN [Suspect]
     Indication: HEPATITIS C
     Dosage: UNK
     Dates: start: 20121104

REACTIONS (16)
  - Arthralgia [Unknown]
  - Insomnia [Unknown]
  - Memory impairment [Unknown]
  - Irritable bowel syndrome [Unknown]
  - Eye disorder [Unknown]
  - Visual impairment [Unknown]
  - Vertigo [Unknown]
  - Balance disorder [Unknown]
  - Headache [Unknown]
  - White blood cell count decreased [Unknown]
  - White blood cell count decreased [Unknown]
  - Nausea [Unknown]
  - Headache [Unknown]
  - Fatigue [Unknown]
  - Irritability [Unknown]
  - Depression [Unknown]
